FAERS Safety Report 9390471 (Version 2)
Quarter: 2013Q3

REPORT INFORMATION
  Report Type: Spontaneous
  Country: US (occurrence: US)
  Receive Date: 20130709
  Receipt Date: 20130726
  Transmission Date: 20140515
  Serious: Yes (Hospitalization)
  Sender: FDA-Public Use
  Company Number: US-BIOGENIDEC-2013BI060318

PATIENT
  Age: 59 Year
  Sex: Female

DRUGS (1)
  1. AVONEX [Suspect]
     Indication: MULTIPLE SCLEROSIS
     Route: 030
     Dates: start: 201103

REACTIONS (5)
  - Abdominal pain [Recovered/Resolved]
  - Back pain [Unknown]
  - Groin pain [Unknown]
  - Pain in extremity [Unknown]
  - Multiple sclerosis relapse [Unknown]
